FAERS Safety Report 6438945-3 (Version None)
Quarter: 2009Q4

REPORT INFORMATION
  Report Type: 
  Country: None (occurrence: None)
  Receive Date: 20091111
  Receipt Date: 20091111
  Transmission Date: 20100525
  Serious: No
  Sender: FDA-Public Use
  Company Number: None

PATIENT
  Age: 10 Year
  Sex: Male
  Weight: 43.0917 kg

DRUGS (5)
  1. TAMIFLU [Suspect]
     Indication: ASTHMA
     Dosage: 75 MG 2 TIMES PER DAY PO I GAVE HIM ONE DOSE ONLY
     Route: 048
     Dates: start: 20091107, end: 20091107
  2. TAMIFLU [Suspect]
     Indication: COUGH
     Dosage: 75 MG 2 TIMES PER DAY PO I GAVE HIM ONE DOSE ONLY
     Route: 048
     Dates: start: 20091107, end: 20091107
  3. TAMIFLU [Suspect]
     Indication: INFLUENZA
     Dosage: 75 MG 2 TIMES PER DAY PO I GAVE HIM ONE DOSE ONLY
     Route: 048
     Dates: start: 20091107, end: 20091107
  4. TAMIFLU [Suspect]
     Indication: PAIN
     Dosage: 75 MG 2 TIMES PER DAY PO I GAVE HIM ONE DOSE ONLY
     Route: 048
     Dates: start: 20091107, end: 20091107
  5. TAMIFLU [Suspect]
     Indication: PYREXIA
     Dosage: 75 MG 2 TIMES PER DAY PO I GAVE HIM ONE DOSE ONLY
     Route: 048
     Dates: start: 20091107, end: 20091107

REACTIONS (7)
  - AGITATION [None]
  - HALLUCINATION [None]
  - NAUSEA [None]
  - PRODUCT QUALITY ISSUE [None]
  - PSYCHOTIC DISORDER [None]
  - RESTLESSNESS [None]
  - VOMITING [None]
